FAERS Safety Report 23270529 (Version 1)
Quarter: 2023Q4

REPORT INFORMATION
  Report Type: Spontaneous
  Country: JP (occurrence: JP)
  Receive Date: 20231207
  Receipt Date: 20231207
  Transmission Date: 20240109
  Serious: Yes (Death, Hospitalization, Other)
  Sender: FDA-Public Use
  Company Number: JP-STERISCIENCE B.V.-2023-ST-002282

PATIENT
  Age: 45 Year
  Sex: Female

DRUGS (29)
  1. MEROPENEM [Suspect]
     Active Substance: MEROPENEM
     Indication: Stenotrophomonas infection
     Dosage: UNK
     Route: 065
  2. MEROPENEM [Suspect]
     Active Substance: MEROPENEM
     Indication: Bacteraemia
  3. CEFEPIME [Suspect]
     Active Substance: CEFEPIME HYDROCHLORIDE
     Indication: Stenotrophomonas infection
     Dosage: UNK
     Route: 042
  4. CEFEPIME [Suspect]
     Active Substance: CEFEPIME HYDROCHLORIDE
     Indication: Bacteraemia
  5. TEICOPLANIN [Suspect]
     Active Substance: TEICOPLANIN
     Indication: Stenotrophomonas infection
     Dosage: UNK
     Route: 065
  6. TEICOPLANIN [Suspect]
     Active Substance: TEICOPLANIN
     Indication: Bacteraemia
  7. MICAFUNGIN [Suspect]
     Active Substance: MICAFUNGIN SODIUM
     Indication: Stenotrophomonas infection
     Dosage: UNK
     Route: 065
  8. MICAFUNGIN [Suspect]
     Active Substance: MICAFUNGIN SODIUM
     Indication: Bacteraemia
  9. FLUCONAZOLE [Suspect]
     Active Substance: FLUCONAZOLE
     Indication: Antifungal treatment
     Dosage: 200 MILLIGRAM, QD
     Route: 065
  10. FLUCONAZOLE [Suspect]
     Active Substance: FLUCONAZOLE
     Indication: Evidence based treatment
  11. AMPHOTERICIN B [Suspect]
     Active Substance: AMPHOTERICIN B
     Indication: Candida infection
     Dosage: UNK
     Route: 065
  12. AMPHOTERICIN B [Suspect]
     Active Substance: AMPHOTERICIN B
     Indication: Fungaemia
  13. COTRIMOXAZOLE [Suspect]
     Active Substance: SULFAMETHOXAZOLE\TRIMETHOPRIM
     Indication: Stenotrophomonas infection
     Dosage: 15 MILLIGRAM/KILOGRAM, QD
     Route: 065
  14. COTRIMOXAZOLE [Suspect]
     Active Substance: SULFAMETHOXAZOLE\TRIMETHOPRIM
     Indication: Bacteraemia
  15. LEVOFLOXACIN [Suspect]
     Active Substance: LEVOFLOXACIN
     Indication: Stenotrophomonas infection
     Dosage: 500 MILLIGRAM, QD
     Route: 042
  16. LEVOFLOXACIN [Suspect]
     Active Substance: LEVOFLOXACIN
     Indication: Bacteraemia
  17. CYTARABINE [Concomitant]
     Active Substance: CYTARABINE
     Indication: Bone marrow conditioning regimen
     Dosage: UNK
     Route: 065
  18. CYTARABINE [Concomitant]
     Active Substance: CYTARABINE
     Indication: Immunosuppressant drug therapy
  19. CYCLOPHOSPHAMIDE [Concomitant]
     Active Substance: CYCLOPHOSPHAMIDE
     Indication: Bone marrow conditioning regimen
     Dosage: UNK
     Route: 065
  20. CYCLOPHOSPHAMIDE [Concomitant]
     Active Substance: CYCLOPHOSPHAMIDE
     Indication: Immunosuppressant drug therapy
  21. HYDROCORTISONE [Concomitant]
     Active Substance: HYDROCORTISONE
     Indication: Hormone replacement therapy
     Dosage: 20 MILLIGRAM, QD
     Route: 065
  22. HYDROCORTISONE [Concomitant]
     Active Substance: HYDROCORTISONE
     Indication: Immunosuppressant drug therapy
     Dosage: 50 MILLIGRAM, QD
     Route: 065
  23. HYDROCORTISONE [Concomitant]
     Active Substance: HYDROCORTISONE
     Indication: Adrenal insufficiency
  24. CYCLOSPORINE [Concomitant]
     Active Substance: CYCLOSPORINE
     Indication: Prophylaxis against graft versus host disease
     Dosage: UNK
     Route: 042
  25. CYCLOSPORINE [Concomitant]
     Active Substance: CYCLOSPORINE
     Indication: Immunosuppressant drug therapy
  26. METHOTREXATE [Concomitant]
     Active Substance: METHOTREXATE
     Indication: Prophylaxis against graft versus host disease
     Dosage: SHORT TERM
     Route: 065
  27. METHOTREXATE [Concomitant]
     Active Substance: METHOTREXATE
     Indication: Immunosuppressant drug therapy
  28. LEVOTHYROXINE [Concomitant]
     Active Substance: LEVOTHYROXINE
     Indication: Hormone replacement therapy
     Dosage: 125 MICROGRAM, QD
     Route: 065
  29. VASOPRESSIN [Concomitant]
     Active Substance: VASOPRESSIN
     Indication: Hormone replacement therapy
     Dosage: 5 MICROGRAM, QD
     Route: 065

REACTIONS (1)
  - Drug ineffective [Fatal]
